FAERS Safety Report 9070058 (Version 1)
Quarter: 2013Q1

REPORT INFORMATION
  Report Type: Report from Study
  Country: US (occurrence: US)
  Receive Date: 20130129
  Receipt Date: 20130129
  Transmission Date: 20140127
  Serious: No
  Sender: FDA-Public Use
  Company Number: US-ABBOTT-12P-163-0940871-00

PATIENT
  Age: 62 Year
  Sex: Male

DRUGS (5)
  1. HUMIRA 40 MG/0.8 ML PEN [Suspect]
     Indication: COLITIS ULCERATIVE
     Dates: start: 201203
  2. 6-MP [Concomitant]
     Indication: COLITIS ULCERATIVE
     Dosage: DAILY; OUT OF MEDICATION SINCE 26 MAY 2012 AND AWAITING REFILL
  3. LIALDA [Concomitant]
     Indication: COLITIS
     Dosage: DAILY
  4. IBUPROFEN [Concomitant]
     Indication: PAIN
  5. VIIBRYD [Concomitant]
     Indication: DEPRESSION
     Dosage: DAILY; WEANING OFF MEDICATION

REACTIONS (12)
  - Periarthritis [Not Recovered/Not Resolved]
  - Muscle spasms [Not Recovered/Not Resolved]
  - Pain in extremity [Not Recovered/Not Resolved]
  - Arthritis [Not Recovered/Not Resolved]
  - Muscle spasms [Not Recovered/Not Resolved]
  - Pain in extremity [Not Recovered/Not Resolved]
  - Pain in extremity [Not Recovered/Not Resolved]
  - Arthritis [Not Recovered/Not Resolved]
  - Muscle spasms [Not Recovered/Not Resolved]
  - Pain in extremity [Not Recovered/Not Resolved]
  - Incorrect route of drug administration [Unknown]
  - Incorrect dose administered [Unknown]
